FAERS Safety Report 6729859-X (Version None)
Quarter: 2010Q2

REPORT INFORMATION
  Report Type: 
  Country: None (occurrence: None)
  Receive Date: 20100513
  Receipt Date: 20080218
  Transmission Date: 20101027
  Serious: No
  Sender: FDA-Public Use
  Company Number: 2008-00041

PATIENT
  Sex: Female
  Weight: 72.5755 kg

DRUGS (5)
  1. ZICAM COLD REMEDY NASAL GEL [Suspect]
     Dosage: BID X 4 DAYS
     Dates: start: 20080206, end: 20080210
  2. LISINOPRIL [Concomitant]
  3. MULTI-VITAMIN [Concomitant]
  4. VITAMIN C [Concomitant]
  5. TAMIFLU [Concomitant]

REACTIONS (2)
  - AGEUSIA [None]
  - ANOSMIA [None]
